FAERS Safety Report 9626509 (Version 1)
Quarter: 2013Q4

REPORT INFORMATION
  Report Type: Spontaneous
  Country: US (occurrence: None)
  Receive Date: 20131015
  Receipt Date: 20131015
  Transmission Date: 20140711
  Serious: Yes (Life-Threatening, Hospitalization, Disabling)
  Sender: FDA-Public Use
  Company Number: None

PATIENT
  Age: 65 Year
  Sex: Female
  Weight: 61.24 kg

DRUGS (1)
  1. FOSAMAX [Suspect]
     Indication: OSTEOPENIA
     Dosage: 1 PILL WEEKLY, TAKEN BY MOUTH
     Route: 048

REACTIONS (5)
  - Femur fracture [None]
  - Pathological fracture [None]
  - Vertigo [None]
  - Post procedural complication [None]
  - Stress fracture [None]
